FAERS Safety Report 4435386-5 (Version None)
Quarter: 2004Q3

REPORT INFORMATION
  Report Type: 
  Country: None (occurrence: None)
  Receive Date: 20040826
  Receipt Date: 20040810
  Transmission Date: 20050211
  Serious: Yes (Hospitalization)
  Sender: FDA-Public Use
  Company Number: 201718

PATIENT
  Age: 57 Year
  Sex: Female
  Weight: 45.8133 kg

DRUGS (8)
  1. AVONEX [Suspect]
     Indication: MULTIPLE SCLEROSIS
     Dosage: 30 MCG QW IM
     Dates: start: 20001129, end: 20030801
  2. AVONEX [Suspect]
     Indication: MULTIPLE SCLEROSIS
     Dosage: 30 MCG QW IM
     Dates: start: 20030801
  3. CARDIZEM [Concomitant]
  4. PRILOSEC [Concomitant]
  5. VITAMIN A [Concomitant]
  6. STRESSTABS [Concomitant]
  7. VALIUM [Concomitant]
  8. MIRALAX [Concomitant]

REACTIONS (11)
  - BLOOD POTASSIUM DECREASED [None]
  - BLOOD SODIUM DECREASED [None]
  - CEREBROVASCULAR ACCIDENT [None]
  - CHEST PAIN [None]
  - CORONARY ARTERY OCCLUSION [None]
  - DYSPHAGIA [None]
  - GASTROINTESTINAL DISORDER [None]
  - INFLUENZA LIKE ILLNESS [None]
  - INJECTION SITE INDURATION [None]
  - OESOPHAGEAL STENOSIS [None]
  - PAIN IN EXTREMITY [None]
